FAERS Safety Report 9384024 (Version 2)
Quarter: 2013Q3

REPORT INFORMATION
  Report Type: Spontaneous
  Country: FR (occurrence: FR)
  Receive Date: 20130705
  Receipt Date: 20130805
  Transmission Date: 20140515
  Serious: Yes (Hospitalization)
  Sender: FDA-Public Use
  Company Number: FR-JNJFOC-20130618584

PATIENT
  Age: 59 Year
  Sex: Male

DRUGS (6)
  1. REMICADE [Suspect]
     Indication: PRODUCT USED FOR UNKNOWN INDICATION
     Route: 042
  2. REMICADE [Suspect]
     Indication: PRODUCT USED FOR UNKNOWN INDICATION
     Dosage: 9TH CYCLE
     Route: 042
     Dates: start: 20130411
  3. REMICADE [Suspect]
     Indication: PRODUCT USED FOR UNKNOWN INDICATION
     Dosage: 10TH CYCLE
     Route: 042
     Dates: start: 20130606, end: 20130606
  4. INSULIN [Suspect]
     Indication: DIABETES MELLITUS
     Route: 065
  5. CRESTOR [Suspect]
     Indication: PRODUCT USED FOR UNKNOWN INDICATION
     Route: 048
  6. ZYLORIC [Suspect]
     Indication: PRODUCT USED FOR UNKNOWN INDICATION
     Route: 048

REACTIONS (9)
  - Malaise [Recovered/Resolved]
  - Pallor [Recovered/Resolved]
  - Body temperature increased [Recovered/Resolved]
  - Bacterial infection [Recovered/Resolved]
  - Chills [Recovered/Resolved]
  - Dyspnoea [Recovered/Resolved]
  - Pain [Recovered/Resolved]
  - Skin discolouration [Recovered/Resolved]
  - Infusion related reaction [Recovered/Resolved]
